FAERS Safety Report 7040376-2 (Version None)
Quarter: 2010Q4

REPORT INFORMATION
  Report Type: 
  Country: None (occurrence: None)
  Receive Date: 20101008
  Receipt Date: 20101008
  Transmission Date: 20110411
  Serious: Yes (Other)
  Sender: FDA-Public Use
  Company Number: None

PATIENT
  Sex: Female

DRUGS (3)
  1. AVONEX [Suspect]
     Dosage: 15MCG (0.25ML) INTRAMUSCULARY WEEKL FOR 4 WEEKS THEN INCREASE TO 30MCG (0.5ML) INTRAMUSCULARLY WEEKL
     Route: 030
  2. DIOVAN TAB [Concomitant]
  3. LOTREL CAP [Concomitant]

REACTIONS (2)
  - ASTHENIA [None]
  - HYPOKINESIA [None]
